FAERS Safety Report 10476065 (Version 2)
Quarter: 2014Q4

REPORT INFORMATION
  Report Type: Spontaneous
  Country: US (occurrence: US)
  Receive Date: 20140925
  Receipt Date: 20141023
  Transmission Date: 20150528
  Serious: Yes (Death, Other)
  Sender: FDA-Public Use
  Company Number: US-JNJFOC-20140923426

PATIENT
  Sex: Female
  Weight: 62 kg

DRUGS (11)
  1. BACTRIM [Concomitant]
     Active Substance: SULFAMETHOXAZOLE\TRIMETHOPRIM
     Dosage: MON-WED-FRI
  2. BIFIDOBACTERIUM LACTIS (ANTIDIARRHOEAL MICROORGANISMS) [Concomitant]
     Dosage: 1
     Route: 048
  3. LEVOFLOXACIN. [Concomitant]
     Active Substance: LEVOFLOXACIN
  4. PREDNISONE. [Concomitant]
     Active Substance: PREDNISONE
     Dosage: ONE
  5. COMPAZINE [Concomitant]
     Active Substance: PROCHLORPERAZINE MALEATE
     Dosage: PRN
  6. IMBRUVICA [Suspect]
     Active Substance: IBRUTINIB
     Indication: CHRONIC LYMPHOCYTIC LEUKAEMIA
     Route: 048
     Dates: start: 20140225, end: 20140407
  7. OMEPRAZOLE. [Concomitant]
     Active Substance: OMEPRAZOLE
  8. PROAIR HFA [Concomitant]
     Active Substance: ALBUTEROL SULFATE
     Dosage: 1 PUFF, Q 4-6 HR
  9. VENLAFAXINE [Concomitant]
     Active Substance: VENLAFAXINE HYDROCHLORIDE
  10. METOPROLOL [Concomitant]
     Active Substance: METOPROLOL
     Dosage: 1
  11. ACYCLOVIR. [Concomitant]
     Active Substance: ACYCLOVIR

REACTIONS (3)
  - Death [Fatal]
  - Pneumonitis [Unknown]
  - Sepsis [Fatal]

NARRATIVE: CASE EVENT DATE: 2014
